FAERS Safety Report 9775310 (Version 1)
Quarter: 2013Q4

REPORT INFORMATION
  Report Type: Spontaneous
  Country: US (occurrence: None)
  Receive Date: 20131219
  Receipt Date: 20131219
  Transmission Date: 20140711
  Serious: Yes (Other)
  Sender: FDA-Public Use
  Company Number: None

PATIENT
  Age: 30 Year
  Sex: Male
  Weight: 79.38 kg

DRUGS (1)
  1. DILAUDID [Suspect]
     Indication: BACK PAIN
     Dosage: 1 SHOT, STRENGTH UNKNOWN, ONCE, INJECTION
     Dates: start: 20131128, end: 20131128

REACTIONS (9)
  - Nausea [None]
  - Gait disturbance [None]
  - Vomiting [None]
  - Crying [None]
  - Confusional state [None]
  - Memory impairment [None]
  - Back pain [None]
  - Abnormal behaviour [None]
  - Condition aggravated [None]
